FAERS Safety Report 4531943-6 (Version None)
Quarter: 2004Q4

REPORT INFORMATION
  Report Type: 
  Country: None (occurrence: None)
  Receive Date: 20041216
  Receipt Date: 20041208
  Transmission Date: 20050328
  Serious: Yes (Hospitalization)
  Sender: FDA-Public Use
  Company Number: MEDI-0002544

PATIENT
  Age: 53 Year
  Sex: Male
  Weight: 87.5442 kg

DRUGS (5)
  1. ETHYOL [Suspect]
     Indication: CHEMOTHERAPY
     Dosage: 500 MG, 5 IN 1 WK, SUBCUTANEOUS
     Route: 058
     Dates: start: 20041102, end: 20041202
  2. ETHYOL [Suspect]
     Indication: RADIOTHERAPY
     Dosage: 500 MG, 5 IN 1 WK, SUBCUTANEOUS
     Route: 058
     Dates: start: 20041102, end: 20041202
  3. RADIATION THERAPY [Concomitant]
  4. CISPLATIN [Concomitant]
  5. COMPAZINE [Concomitant]

REACTIONS (7)
  - DEHYDRATION [None]
  - MUCOSAL INFLAMMATION [None]
  - PAIN [None]
  - PYREXIA [None]
  - RADIATION SKIN INJURY [None]
  - SKIN DESQUAMATION [None]
  - SKIN DISCOLOURATION [None]
